FAERS Safety Report 6856903-1 (Version None)
Quarter: 2010Q3

REPORT INFORMATION
  Report Type: 
  Country: None (occurrence: None)
  Receive Date: 20100719
  Receipt Date: 20100706
  Transmission Date: 20110219
  Serious: Yes (Hospitalization)
  Sender: FDA-Public Use
  Company Number: PHHY2010ES44085

PATIENT
  Age: 80 Year
  Sex: Female

DRUGS (2)
  1. TASIGNA [Suspect]
     Indication: CHRONIC MYELOID LEUKAEMIA
     Dosage: 400 MG, BID
  2. DRUG THERAPY NOS [Interacting]
     Indication: DEMENTIA ALZHEIMER'S TYPE

REACTIONS (2)
  - DRUG INTERACTION [None]
  - SKIN TOXICITY [None]
